FAERS Safety Report 9604404 (Version 2)
Quarter: 2014Q2

REPORT INFORMATION
  Report Type: Report from Study
  Country: US (occurrence: US)
  Receive Date: 20131008
  Receipt Date: 20140507
  Transmission Date: 20141212
  Serious: Yes (Hospitalization)
  Sender: FDA-Public Use
  Company Number: US-SA-2013SA097085

PATIENT
  Age: 70 Year
  Sex: Female
  Weight: 72.57 kg

DRUGS (7)
  1. LANTUS [Suspect]
     Indication: DIABETES MELLITUS
     Dosage: DOSE:55 UNIT(S)
     Route: 058
  2. CYMBALTA [Concomitant]
     Route: 065
  3. LOPRESSOR [Concomitant]
     Indication: HYPERTENSION
     Route: 065
     Dates: start: 201009
  4. LIVALO [Concomitant]
  5. PROTONIX [Concomitant]
     Indication: GASTRIC DISORDER
     Route: 065
  6. ALLEGRA [Concomitant]
     Indication: HYPERSENSITIVITY
     Route: 065
  7. ANTIDEPRESSANTS [Concomitant]

REACTIONS (10)
  - Arthropathy [Recovered/Resolved]
  - Ovarian cyst [Recovered/Resolved]
  - Uterine disorder [Recovered/Resolved]
  - Cataract [Recovered/Resolved]
  - Cardiac disorder [Recovered/Resolved]
  - Eyelid ptosis [Recovered/Resolved]
  - Eye allergy [Recovered/Resolved]
  - Eye swelling [Recovered/Resolved]
  - Visual impairment [Recovered/Resolved]
  - Gastric disorder [Unknown]
